FAERS Safety Report 9175939 (Version 3)
Quarter: 2013Q2

REPORT INFORMATION
  Report Type: Report from Study
  Country: US (occurrence: US)
  Receive Date: 20130320
  Receipt Date: 20130424
  Transmission Date: 20140414
  Serious: Yes (Hospitalization)
  Sender: FDA-Public Use
  Company Number: US-PFIZER INC-2013080949

PATIENT
  Age: 66 Year
  Sex: Female

DRUGS (16)
  1. SUNITINIB MALATE [Suspect]
     Indication: METASTATIC RENAL CELL CARCINOMA
     Dosage: 50 MG DAILY ON DAYS 1-28
     Route: 048
     Dates: start: 20130110
  2. BMS-936558 [Suspect]
     Indication: METASTATIC RENAL CELL CARCINOMA
     Dosage: 283.5 MG, 1/3 WEEK
     Route: 042
     Dates: start: 20130110
  3. VITAMIN C [Concomitant]
     Dosage: UNK
     Dates: start: 20000101
  4. VITAMIN D3 [Concomitant]
     Dosage: UNK
     Dates: start: 20000101
  5. CO-Q-10 PLUS [Concomitant]
     Dosage: UNK
     Dates: start: 20000101
  6. SYNTHROID [Concomitant]
     Dosage: UNK
     Dates: start: 20030711
  7. HYDROCHLOROTHIAZIDE [Concomitant]
     Dosage: UNK
     Dates: start: 20070427
  8. LISINOPRIL [Concomitant]
     Dosage: UNK
     Dates: start: 20081027
  9. METOPROLOL [Concomitant]
     Dosage: UNK
     Dates: start: 20081027
  10. ACETYLSALICYLIC ACID [Concomitant]
     Dosage: UNK
     Dates: start: 20100101
  11. ZANTAC [Concomitant]
     Dosage: UNK
     Dates: start: 20100101
  12. IRON [Concomitant]
     Dosage: UNK
     Dates: start: 20130106
  13. SENNA [Concomitant]
     Dosage: UNK
     Dates: start: 20130128, end: 20130128
  14. COLACE [Concomitant]
     Dosage: UNK
     Dates: start: 20130130, end: 20130130
  15. MIRALAX [Concomitant]
     Dosage: UNK
     Dates: start: 20130131
  16. NORMAL SALINE [Concomitant]
     Dosage: UNK
     Dates: start: 20130131, end: 20130131

REACTIONS (1)
  - Muscular weakness [Not Recovered/Not Resolved]
